FAERS Safety Report 10038919 (Version 1)
Quarter: 2014Q1

REPORT INFORMATION
  Report Type: Spontaneous
  Country: US (occurrence: None)
  Receive Date: 20140306
  Receipt Date: 20140306
  Transmission Date: 20141002
  Serious: Yes (Disabling)
  Sender: FDA-Public Use
  Company Number: 163-21880-13072300

PATIENT
  Sex: Male

DRUGS (14)
  1. REVLIMID [Suspect]
     Indication: PLASMA CELL MYELOMA
     Route: 048
     Dates: start: 2005, end: 200809
  2. IMODIUM AD (LOPERAMIDE HYDROCHLORIDE) [Concomitant]
  3. LOMOTIL (LOMOTIL) [Concomitant]
  4. DYAZIDE (DYAZIDE) (TABLETS) [Concomitant]
  5. LISINOPRIL (LISINOPRIL) [Concomitant]
  6. MOTRIN (IBUPROFEN) [Concomitant]
  7. PROVENTIL HFA (SALBUTAMOL) (INHALANT) [Concomitant]
  8. ZOMETA (ZOLEDRONIC ACID) [Concomitant]
  9. DEXAMETHASONE (DEXAMETHASONE) [Concomitant]
  10. NORVASC (AMLODIPINE BESILATE) [Concomitant]
  11. PEPCID (FAMOTIDINE) [Concomitant]
  12. VITAMINS (VITAMINS) [Concomitant]
  13. VICODIN (VICODIN) [Concomitant]
  14. COUMADIN (WARFARIN SODIUM) [Concomitant]

REACTIONS (1)
  - Neuropathy peripheral [None]
